FAERS Safety Report 4464632-7 (Version None)
Quarter: 2004Q3

REPORT INFORMATION
  Report Type: 
  Country: None (occurrence: None)
  Receive Date: 20040928
  Receipt Date: 20040906
  Transmission Date: 20050211
  Serious: Yes (Other)
  Sender: FDA-Public Use
  Company Number: B0345042A

PATIENT
  Age: 4 Year
  Sex: Female

DRUGS (2)
  1. VENTOLIN HFA [Suspect]
     Indication: ASTHMA
     Dosage: 100 MCG/ FIVE TIMES PER DAY/ INHALE
     Route: 055
     Dates: start: 20010404
  2. BECONASE [Suspect]
     Indication: ASTHMA
     Dosage: 50 MCG/ PER DAY/ INHALED
     Route: 055
     Dates: start: 20010521

REACTIONS (2)
  - DENTINOGENESIS IMPERFECTA [None]
  - TOOTH HYPOPLASIA [None]
